FAERS Safety Report 14193084 (Version 3)
Quarter: 2018Q1

REPORT INFORMATION
  Report Type: Report from Study
  Country: None (occurrence: JP)
  Receive Date: 20171115
  Receipt Date: 20180123
  Transmission Date: 20180508
  Serious: Yes (Hospitalization)
  Sender: FDA-Public Use
  Company Number: JP-ABBVIE-17P-087-2156043-00

PATIENT
  Age: 75 Year
  Sex: Female
  Weight: 48.3 kg

DRUGS (15)
  1. VENETOCLAX. [Suspect]
     Active Substance: VENETOCLAX
     Route: 048
     Dates: start: 20170831, end: 20170924
  2. VENETOCLAX. [Suspect]
     Active Substance: VENETOCLAX
     Route: 048
     Dates: start: 20171129
  3. VENETOCLAX. [Suspect]
     Active Substance: VENETOCLAX
     Indication: ACUTE MYELOID LEUKAEMIA
     Route: 048
     Dates: start: 20170828, end: 20170828
  4. VENETOCLAX. [Suspect]
     Active Substance: VENETOCLAX
     Route: 048
     Dates: start: 20171016
  5. CYTARABINE. [Suspect]
     Active Substance: CYTARABINE
     Dosage: DAYS 1-10 OF EACH CYCLE
     Route: 058
     Dates: start: 20171129
  6. DERMOSOL-G [Concomitant]
     Indication: DERMATITIS CONTACT
     Dosage: FINGERTIP UNIT
     Route: 003
     Dates: start: 20170828
  7. LEVOFLOXACIN. [Concomitant]
     Active Substance: LEVOFLOXACIN
     Indication: INFECTION PROPHYLAXIS
     Route: 048
     Dates: start: 20171103, end: 20171122
  8. MAGMITT TAB [Concomitant]
     Route: 048
     Dates: start: 20171006
  9. FEBUXOSTAT. [Concomitant]
     Active Substance: FEBUXOSTAT
     Indication: PROPHYLAXIS
     Route: 048
     Dates: start: 20170822, end: 20170831
  10. VENETOCLAX. [Suspect]
     Active Substance: VENETOCLAX
     Route: 048
     Dates: start: 20170830, end: 20170830
  11. SENNOSIDE TABLETS [Concomitant]
     Indication: CONSTIPATION
     Route: 048
     Dates: start: 20170830
  12. CYTARABINE. [Suspect]
     Active Substance: CYTARABINE
     Indication: ACUTE MYELOID LEUKAEMIA
     Dosage: DAYS 1-10 OF EACH 28 DAY CYCLE
     Route: 058
     Dates: start: 20170828
  13. VENETOCLAX. [Suspect]
     Active Substance: VENETOCLAX
     Route: 048
     Dates: start: 20170829, end: 20170829
  14. MAGMITT TAB [Concomitant]
     Indication: CONSTIPATION
     Route: 048
     Dates: start: 20170918, end: 20171005
  15. FAMOTIDINE OD TABLETS [Concomitant]
     Indication: PROPHYLAXIS AGAINST GASTROINTESTINAL ULCER
     Route: 048
     Dates: start: 201411

REACTIONS (2)
  - White blood cell count decreased [Recovered/Resolved]
  - Neutrophil count decreased [Recovered/Resolved]

NARRATIVE: CASE EVENT DATE: 20171107
